FAERS Safety Report 19641099 (Version 1)
Quarter: 2021Q3

REPORT INFORMATION
  Report Type: Spontaneous
  Country: US (occurrence: US)
  Receive Date: 20210730
  Receipt Date: 20210730
  Transmission Date: 20211014
  Serious: Yes (Other)
  Sender: FDA-Public Use
  Company Number: US-SA-2021SA251513

PATIENT
  Age: 55 Year
  Sex: Female

DRUGS (4)
  1. VALTREX [Suspect]
     Active Substance: VALACYCLOVIR HYDROCHLORIDE
     Indication: PRODUCT USED FOR UNKNOWN INDICATION
     Dosage: UNK
  2. STELARA [Suspect]
     Active Substance: USTEKINUMAB
     Indication: PRODUCT USED FOR UNKNOWN INDICATION
     Dosage: UNK
  3. HUMIRA [Suspect]
     Active Substance: ADALIMUMAB
     Indication: PRODUCT USED FOR UNKNOWN INDICATION
     Dosage: UNK
     Route: 058
     Dates: start: 202011
  4. DUPIXENT [Suspect]
     Active Substance: DUPILUMAB
     Indication: PSORIASIS
     Dosage: 300 MG, QOW, Z (1 IN 2 WEEKS)
     Dates: start: 20190717, end: 202002

REACTIONS (11)
  - Abdominal discomfort [Unknown]
  - Pain in extremity [Unknown]
  - Illness [Unknown]
  - Eye pain [Unknown]
  - Product use in unapproved indication [Unknown]
  - Cataract [Unknown]
  - Eye infection [Unknown]
  - Psoriasis [Recovered/Resolved]
  - Syringe issue [Unknown]
  - Rash vesicular [Unknown]
  - Rash [Unknown]

NARRATIVE: CASE EVENT DATE: 20190717
